FAERS Safety Report 9209251 (Version 1)
Quarter: 2013Q2

REPORT INFORMATION
  Report Type: Spontaneous
  Country: GB (occurrence: GB)
  Receive Date: 20130404
  Receipt Date: 20130404
  Transmission Date: 20140414
  Serious: Yes (Hospitalization)
  Sender: FDA-Public Use
  Company Number: GB-BANPHARM-20131118

PATIENT
  Age: 7 Year
  Sex: Female
  Weight: 21.7 kg

DRUGS (2)
  1. IBUPROFEN UNKNOWN PRODUCT [Suspect]
     Indication: PYREXIA
     Route: 048
     Dates: start: 20040518, end: 20040519
  2. PHENOXYMETHYLPENICILLIN [Concomitant]
     Route: 048
     Dates: start: 20040518, end: 20040519

REACTIONS (2)
  - Renal failure acute [Recovering/Resolving]
  - Tubulointerstitial nephritis [Recovering/Resolving]
